FAERS Safety Report 6152270-X (Version None)
Quarter: 2009Q2

REPORT INFORMATION
  Report Type: 
  Country: None (occurrence: None)
  Receive Date: 20090410
  Receipt Date: 20090330
  Transmission Date: 20091009
  Serious: Yes (Other)
  Sender: FDA-Public Use
  Company Number: IT-GENENTECH-280775

PATIENT
  Age: 71 Year
  Sex: Male

DRUGS (5)
  1. AVASTIN [Suspect]
     Indication: HEPATIC NEOPLASM
     Route: 065
  2. FLUOROURACIL [Suspect]
     Indication: HEPATIC NEOPLASM
     Route: 065
  3. FOLINIC ACID [Suspect]
     Indication: HEPATIC NEOPLASM
     Route: 065
  4. IRINOTECAN HCL [Suspect]
     Indication: HEPATIC NEOPLASM
     Dosage: UNK
     Route: 065
  5. OXALIPLATIN [Suspect]
     Indication: HEPATIC NEOPLASM
     Route: 065

REACTIONS (2)
  - DISEASE PROGRESSION [None]
  - DRUG TOXICITY [None]
